FAERS Safety Report 7789675-7 (Version None)
Quarter: 2011Q3

REPORT INFORMATION
  Report Type: 
  Country: None (occurrence: None)
  Receive Date: 20110930
  Receipt Date: 20110922
  Transmission Date: 20111222
  Serious: Yes (Hospitalization)
  Sender: FDA-Public Use
  Company Number: US-US-EMD SERONO, INC.-7085181

PATIENT
  Sex: Female

DRUGS (4)
  1. REBIF [Suspect]
     Indication: PRODUCT USED FOR UNKNOWN INDICATION
     Route: 058
     Dates: start: 20080527, end: 20110601
  2. UNSPECIFIED MEDICATIONS [Concomitant]
  3. UNSPECIFIED MEDICATION [Concomitant]
     Indication: DEPRESSION
     Dates: end: 20110601
  4. UNSPECIFIED MEDICATION [Concomitant]
     Dates: end: 20110601

REACTIONS (3)
  - SUICIDAL IDEATION [None]
  - ANGER [None]
  - DEPRESSED MOOD [None]
